FAERS Safety Report 21729962 (Version 1)
Quarter: 2022Q4

REPORT INFORMATION
  Report Type: Report from Study
  Country: FR (occurrence: FR)
  Receive Date: 20221214
  Receipt Date: 20221214
  Transmission Date: 20230113
  Serious: Yes (Other)
  Sender: FDA-Public Use
  Company Number: FR-Merck Healthcare KGaA-9368771

PATIENT
  Age: 43 Year
  Sex: Female
  Weight: 60 kg

DRUGS (3)
  1. HYDROCORTISONE [Suspect]
     Active Substance: HYDROCORTISONE
     Indication: Product used for unknown indication
     Route: 065
  2. LEVOTHYROXINE [Suspect]
     Active Substance: LEVOTHYROXINE
     Indication: Post procedural hypothyroidism
     Dosage: 100 (UNSPECIFIED UNITS)
     Route: 065
  3. LEVOTHYROXINE [Suspect]
     Active Substance: LEVOTHYROXINE
     Dosage: 75 (UNITS UNSPECIFIED)
     Route: 065

REACTIONS (13)
  - Hypothyroidism [Unknown]
  - Eye swelling [Recovering/Resolving]
  - Weight increased [Unknown]
  - Headache [Unknown]
  - Constipation [Recovered/Resolved]
  - Swelling [Unknown]
  - Feeling cold [Recovering/Resolving]
  - Tri-iodothyronine decreased [Unknown]
  - Anaemia [Unknown]
  - Blood cholesterol increased [Unknown]
  - Fatigue [Unknown]
  - Blood thyroid stimulating hormone decreased [Unknown]
  - Intentional product use issue [Unknown]
